FAERS Safety Report 21474099 (Version 1)
Quarter: 2022Q4

REPORT INFORMATION
  Report Type: Spontaneous
  Country: GB (occurrence: GB)
  Receive Date: 20221018
  Receipt Date: 20221018
  Transmission Date: 20230112
  Serious: Yes (Other)
  Sender: FDA-Public Use
  Company Number: GB-MHRA-MED-202210110843004360-GLRTH

PATIENT
  Age: 51 Year
  Sex: Male

DRUGS (1)
  1. COBICISTAT\DARUNAVIR ETHANOLATE [Suspect]
     Active Substance: COBICISTAT\DARUNAVIR ETHANOLATE
     Indication: HIV test positive
     Dosage: 150MG/800MG
     Route: 048
     Dates: start: 20220601

REACTIONS (1)
  - Medication error [Unknown]
